FAERS Safety Report 7447127 (Version 2)
Quarter: 2013Q2

REPORT INFORMATION
  Report Type: Spontaneous
  Country: US (occurrence: US)
  Receive Date: 20100629
  Receipt Date: 20130528
  Transmission Date: 20140414
  Serious: No
  Sender: FDA-Public Use
  Company Number: US-PFIZER INC-2009196866

PATIENT
  Age: 64 Year
  Sex: Female
  Weight: 52.61 kg

DRUGS (5)
  1. ALPRAZOLAM [Suspect]
     Indication: ANXIETY
     Dosage: UNK
     Route: 048
  2. ALPRAZOLAM [Suspect]
     Indication: MENIERE^S DISEASE
     Dosage: 0.5 MG, 4X/DAY
     Route: 048
  3. ALPRAZOLAM [Suspect]
     Indication: PANIC ATTACK
     Dosage: 0.5 MG, UNK
     Route: 048
  4. ALPRAZOLAM [Suspect]
     Dosage: 0.75 MG, UNK
     Route: 048
  5. PEPCID [Concomitant]
     Dosage: 10 MG, 2X/DAY

REACTIONS (7)
  - Palpitations [Unknown]
  - Balance disorder [Unknown]
  - Post-traumatic stress disorder [Unknown]
  - Bedridden [Unknown]
  - Dizziness [Unknown]
  - Drug ineffective [Unknown]
  - Off label use [Unknown]
